FAERS Safety Report 16664910 (Version 1)
Quarter: 2019Q3

REPORT INFORMATION
  Report Type: Spontaneous
  Country: FR (occurrence: FR)
  Receive Date: 20190803
  Receipt Date: 20190803
  Transmission Date: 20191004
  Serious: Yes (Hospitalization)
  Sender: FDA-Public Use
  Company Number: FR-ACCORD-150015

PATIENT
  Age: 60 Year
  Sex: Male
  Weight: 62 kg

DRUGS (19)
  1. IMODIUM [Concomitant]
     Active Substance: LOPERAMIDE HYDROCHLORIDE
     Dosage: STRENGTH: 2 MG
  2. ZARZIO [Concomitant]
     Active Substance: FILGRASTIM
  3. DOCETAXEL HOSPIRA [Suspect]
     Active Substance: DOCETAXEL
     Indication: ANAL CANCER
     Dosage: STRENGTH:10 MG/ML
     Route: 041
     Dates: start: 20190521, end: 20190521
  4. BACTRIM [Concomitant]
     Active Substance: SULFAMETHOXAZOLE\TRIMETHOPRIM
  5. MOTILIUM [Concomitant]
     Active Substance: DOMPERIDONE
  6. DIFFU K [Concomitant]
     Active Substance: POTASSIUM CHLORIDE
  7. CISPLATINE ACCORD [Suspect]
     Active Substance: CISPLATIN
     Indication: ANAL CANCER
     Dosage: STRENGTH: 1 MG/ML
     Route: 041
     Dates: start: 20190521, end: 20190521
  8. VIREAD [Concomitant]
     Active Substance: TENOFOVIR DISOPROXIL FUMARATE
     Dosage: STRENGTH: 245 MG
  9. EPIVIR [Concomitant]
     Active Substance: LAMIVUDINE
     Dosage: STRENGTH: 300 MG
  10. PREZISTA [Concomitant]
     Active Substance: DARUNAVIR ETHANOLATE
     Dosage: STRENGTH: 600 MG
  11. INNOHEP [Concomitant]
     Active Substance: TINZAPARIN SODIUM
  12. NORVIR [Concomitant]
     Active Substance: RITONAVIR
     Route: 050
  13. ZELITREX [Concomitant]
     Active Substance: VALACYCLOVIR HYDROCHLORIDE
     Dosage: STRENGTH: 500 MG
     Route: 048
  14. MOVICOL [Concomitant]
     Active Substance: POLYETHYLENE GLYCOL 3350\POTASSIUM CHLORIDE\SODIUM BICARBONATE\SODIUM CHLORIDE
  15. LOPERAMIDE [Concomitant]
     Active Substance: LOPERAMIDE
  16. DOLIPRANE [Concomitant]
     Active Substance: ACETAMINOPHEN
  17. FLUOROURACILE ACCORD [Suspect]
     Active Substance: FLUOROURACIL
     Indication: ANAL CANCER
     Dosage: STRENGTH: 50 MG/ML
     Route: 041
     Dates: start: 20190521, end: 20190521
  18. CALTRATE WITH VITAMIN D [Concomitant]
     Active Substance: CALCIUM CARBONATE\CHOLECALCIFEROL
  19. LAMALINE [Concomitant]

REACTIONS (5)
  - Hypocalcaemia [Recovering/Resolving]
  - Off label use [Unknown]
  - Hypomagnesaemia [Recovering/Resolving]
  - Acute kidney injury [Recovering/Resolving]
  - Condition aggravated [Recovering/Resolving]

NARRATIVE: CASE EVENT DATE: 20190531
